FAERS Safety Report 9022374 (Version 1)
Quarter: 2013Q1

REPORT INFORMATION
  Report Type: Spontaneous
  Country: BR (occurrence: BR)
  Receive Date: 20130118
  Receipt Date: 20130118
  Transmission Date: 20140127
  Serious: Yes (Other)
  Sender: FDA-Public Use
  Company Number: BR-JNJFOC-20130106842

PATIENT
  Sex: 0

DRUGS (7)
  1. HALOPERIDOL [Suspect]
     Indication: DELIRIUM
     Route: 065
  2. FENTANYL CITRATE [Concomitant]
     Route: 065
  3. MIDAZOLAM [Concomitant]
     Route: 065
  4. MORPHINE [Concomitant]
     Route: 065
  5. DEXMEDETOMIDINE [Concomitant]
     Route: 065
  6. DIAZEPINE [Concomitant]
     Route: 065
  7. SEDATIVE [Concomitant]
     Route: 065

REACTIONS (1)
  - Delirium [Unknown]
